FAERS Safety Report 4980458-X (Version None)
Quarter: 2006Q2

REPORT INFORMATION
  Report Type: 
  Country: None (occurrence: None)
  Receive Date: 20060418
  Receipt Date: 20060405
  Transmission Date: 20061013
  Serious: Yes (Other)
  Sender: FDA-Public Use
  Company Number: 2006048369

PATIENT
  Sex: Male

DRUGS (4)
  1. CELEBREX [Suspect]
     Indication: ARTHRITIS
  2. FOSAMAX [Concomitant]
  3. PRILOSEC [Concomitant]
  4. PREDNISONE TAB [Concomitant]

REACTIONS (2)
  - ANAEMIA [None]
  - BLOOD IRON DECREASED [None]
